FAERS Safety Report 12444925 (Version 1)
Quarter: 2016Q2

REPORT INFORMATION
  Report Type: Spontaneous
  Country: AU (occurrence: AU)
  Receive Date: 20160607
  Receipt Date: 20160607
  Transmission Date: 20160815
  Serious: Yes (Other)
  Sender: FDA-Public Use
  Company Number: AU-PFIZER INC-2016285509

PATIENT
  Age: 4 Decade
  Sex: Female

DRUGS (1)
  1. CHAMPIX [Suspect]
     Active Substance: VARENICLINE TARTRATE
     Dosage: UNK
     Dates: start: 201605

REACTIONS (5)
  - Abnormal behaviour [Unknown]
  - Suicidal ideation [Unknown]
  - Social avoidant behaviour [Unknown]
  - Personality change [Unknown]
  - Pallor [Unknown]

NARRATIVE: CASE EVENT DATE: 2016
